FAERS Safety Report 8417063-9 (Version None)
Quarter: 2012Q2

REPORT INFORMATION
  Report Type: 
  Country: None (occurrence: None)
  Receive Date: 20120530
  Receipt Date: 20120517
  Transmission Date: 20120825
  Serious: Yes (Other)
  Sender: FDA-Public Use
  Company Number: 1291976

PATIENT
  Age: 57 Year
  Sex: Male
  Weight: 86 kg

DRUGS (3)
  1. METOCLOPRAMIDE [Concomitant]
  2. CYTARABINE [Suspect]
     Indication: PRODUCT USED FOR UNKNOWN INDICATION
     Dosage: 3000MG/M2, 1 EVERY 1 DAY
  3. ONDANSETRON [Concomitant]

REACTIONS (4)
  - CYTARABINE SYNDROME [None]
  - PYREXIA [None]
  - MYALGIA [None]
  - LUNG INFILTRATION [None]
